FAERS Safety Report 17588066 (Version 6)
Quarter: 2020Q2

REPORT INFORMATION
  Report Type: Spontaneous
  Country: US (occurrence: US)
  Receive Date: 20200326
  Receipt Date: 20200611
  Transmission Date: 20200713
  Serious: No
  Sender: FDA-Public Use
  Company Number: US-ACTELION-A-US2020-203516

PATIENT
  Age: 62 Year
  Sex: Female
  Weight: 40.82 kg

DRUGS (5)
  1. UPTRAVI [Suspect]
     Active Substance: SELEXIPAG
     Indication: PULMONARY ARTERIAL HYPERTENSION
     Dosage: 200 MCG, BID
     Route: 048
     Dates: start: 20200314
  2. UPTRAVI [Suspect]
     Active Substance: SELEXIPAG
     Dosage: 200 MCG AM/ 400 MCG PM
     Route: 048
  3. OPSUMIT [Suspect]
     Active Substance: MACITENTAN
     Indication: PULMONARY ARTERIAL HYPERTENSION
     Dosage: 10 MG, QD
     Route: 048
  4. DILTIAZEM. [Concomitant]
     Active Substance: DILTIAZEM
  5. ADEMPAS [Concomitant]
     Active Substance: RIOCIGUAT

REACTIONS (9)
  - Tension headache [Unknown]
  - Photophobia [Unknown]
  - Nausea [Unknown]
  - Ear pain [Unknown]
  - Headache [Not Recovered/Not Resolved]
  - Insomnia [Not Recovered/Not Resolved]
  - Migraine [Recovering/Resolving]
  - Unevaluable event [Unknown]
  - Dizziness [Unknown]

NARRATIVE: CASE EVENT DATE: 20200316
